FAERS Safety Report 11126181 (Version 2)
Quarter: 2015Q3

REPORT INFORMATION
  Report Type: Spontaneous
  Country: US (occurrence: US)
  Receive Date: 20150520
  Receipt Date: 20150724
  Transmission Date: 20151125
  Serious: Yes (Other)
  Sender: FDA-Public Use
  Company Number: US-GLAXOSMITHKLINE-US2015065655

PATIENT
  Age: 79 Year
  Sex: Male

DRUGS (3)
  1. ADVAIR DISKUS [Suspect]
     Active Substance: FLUTICASONE PROPIONATE\SALMETEROL XINAFOATE
     Indication: CHRONIC OBSTRUCTIVE PULMONARY DISEASE
     Dosage: 1 PUFF(S), BID
     Route: 055
     Dates: start: 20150408, end: 20150415
  2. SPIRIVA [Suspect]
     Active Substance: TIOTROPIUM BROMIDE MONOHYDRATE
     Indication: PRODUCT USED FOR UNKNOWN INDICATION
  3. PNEUMONIA 23-VALENT VACCINE [Suspect]
     Active Substance: PNEUMOCOCCAL VACCINE, POLYVALENT 23
     Indication: PRODUCT USED FOR UNKNOWN INDICATION
     Dates: start: 201503, end: 201503

REACTIONS (10)
  - Chills [Recovered/Resolved]
  - Cough [Not Recovered/Not Resolved]
  - Pyrexia [Recovered/Resolved]
  - Pneumonia [Recovered/Resolved]
  - Wheezing [Not Recovered/Not Resolved]
  - Dry mouth [Recovered/Resolved]
  - Hiatus hernia [Not Recovered/Not Resolved]
  - Hypertension [Unknown]
  - Exposure to mould [Unknown]
  - Lung disorder [Not Recovered/Not Resolved]

NARRATIVE: CASE EVENT DATE: 20150514
